FAERS Safety Report 7691550-3 (Version None)
Quarter: 2011Q3

REPORT INFORMATION
  Report Type: 
  Country: None (occurrence: None)
  Receive Date: 20110817
  Receipt Date: 20110817
  Transmission Date: 20111222
  Serious: Yes (Hospitalization)
  Sender: FDA-Public Use
  Company Number: None

PATIENT
  Sex: Female
  Weight: 63 kg

DRUGS (16)
  1. BSO COMPLEX [Concomitant]
  2. COD LIVER OIL [Concomitant]
  3. ASCORBIC ACID [Concomitant]
  4. PROCAINE 2% [Concomitant]
  5. CISPLATIN [Suspect]
     Dosage: 123 MG
     Dates: end: 20110802
  6. GLUCOSAMINE [Concomitant]
  7. POTASSIUM ACETATE [Concomitant]
  8. ZINC [Concomitant]
  9. CALCIUM CARBONATE [Concomitant]
  10. MOTRIN [Concomitant]
  11. RANITIDINE [Concomitant]
  12. VITAMIN B-12 [Concomitant]
  13. VINORELBINE TARTRATE [Suspect]
     Dosage: 100 MG
     Dates: end: 20110809
  14. VITAMIN E [Concomitant]
  15. MAGNESIUM [Concomitant]
  16. TYLENOL-500 [Concomitant]

REACTIONS (1)
  - FEBRILE NEUTROPENIA [None]
